FAERS Safety Report 5190180-5 (Version None)
Quarter: 2006Q4

REPORT INFORMATION
  Report Type: 
  Country: None (occurrence: None)
  Receive Date: 20061222
  Receipt Date: 20060627
  Transmission Date: 20070319
  Serious: No
  Sender: FDA-Public Use
  Company Number: US-AMGEN-KDL184387

PATIENT
  Sex: Female
  Weight: 65.4 kg

DRUGS (9)
  1. ARANESP [Suspect]
     Indication: RENAL FAILURE CHRONIC
     Route: 058
     Dates: start: 20060619, end: 20060619
  2. LANTUS [Concomitant]
     Route: 065
     Dates: start: 20060517
  3. INSULIN [Concomitant]
     Route: 065
  4. REGLAN [Concomitant]
     Route: 065
  5. LIPITOR [Concomitant]
     Route: 065
     Dates: start: 20040611
  6. METOPROLOL SUCCINATE [Concomitant]
     Route: 065
  7. PROTONIX [Concomitant]
     Route: 065
  8. LOPRESSOR [Concomitant]
  9. ASPIRIN [Concomitant]
     Route: 048

REACTIONS (3)
  - ABASIA [None]
  - MUSCULAR WEAKNESS [None]
  - WALKING AID USER [None]
